FAERS Safety Report 9826183 (Version 1)
Quarter: 2014Q1

REPORT INFORMATION
  Report Type: Spontaneous
  Country: US (occurrence: US)
  Receive Date: 20140117
  Receipt Date: 20140117
  Transmission Date: 20141002
  Serious: No
  Sender: FDA-Public Use
  Company Number: US-009507513-1401USA001564

PATIENT
  Age: 74 Year
  Sex: Female
  Weight: 198 kg

DRUGS (7)
  1. HYZAAR [Suspect]
     Indication: HYPERTENSION
     Dosage: 100/25MG, QD
     Route: 048
  2. ATENOLOL [Suspect]
     Indication: HYPERTENSION
     Dosage: 25 MG, QD
     Route: 048
  3. ATENOLOL [Suspect]
     Dosage: 25 MG, BID
  4. VERAPAMIL HYDROCHLORIDE [Concomitant]
     Indication: HYPERTENSION
     Dosage: 180 MG, QD
     Dates: start: 2012
  5. VERAPAMIL HYDROCHLORIDE [Concomitant]
     Indication: HYPERTENSION
     Dosage: 180 MG, QD
     Route: 048
     Dates: start: 201311
  6. XANAX [Concomitant]
     Route: 048
  7. VITAMINS (UNSPECIFIED) [Concomitant]
     Route: 048

REACTIONS (3)
  - Atrial fibrillation [Unknown]
  - Blood pressure abnormal [Unknown]
  - Drug ineffective [Unknown]
